FAERS Safety Report 11205504 (Version 5)
Quarter: 2016Q2

REPORT INFORMATION
  Report Type: Spontaneous
  Country: CN (occurrence: CN)
  Receive Date: 20150622
  Receipt Date: 20160630
  Transmission Date: 20160815
  Serious: Yes (Other)
  Sender: FDA-Public Use
  Company Number: CN-009507513-1501CHN009918

PATIENT
  Age: 68 Year
  Sex: Male
  Weight: 73 kg

DRUGS (36)
  1. EMEND [Suspect]
     Active Substance: APREPITANT
     Dosage: 80 MG, ONCE, DAY TWO
     Route: 048
     Dates: start: 20150108, end: 20150108
  2. EMEND [Suspect]
     Active Substance: APREPITANT
     Dosage: 80 MG, ONCE, DAY THREE
     Route: 048
     Dates: start: 20150109, end: 20150109
  3. CISPLATIN. [Concomitant]
     Active Substance: CISPLATIN
     Dosage: 40 MG, QD/ 40 MG D3; TREATMENT REGIMEN: CISPLATIN AND DOCETAXEL, CYCLE 5/UNK
     Route: 041
     Dates: start: 20150109, end: 20150109
  4. DOXOFYLLINE [Concomitant]
     Active Substance: DOXOFYLLINE
     Indication: COUGH
     Dosage: 0.2 G, QD
     Route: 041
     Dates: end: 20150114
  5. POTASSIUM CHLORIDE. [Concomitant]
     Active Substance: POTASSIUM CHLORIDE
     Dosage: 20 ML, QD
     Route: 041
     Dates: start: 20141231, end: 20150105
  6. DEXAMETHASONE. [Concomitant]
     Active Substance: DEXAMETHASONE
     Indication: PROPHYLAXIS OF NAUSEA AND VOMITING
     Dosage: 10 MG, QD
     Route: 041
     Dates: start: 20150107, end: 20150109
  7. PYRIDOXINE [Concomitant]
     Active Substance: PYRIDOXINE
     Dosage: 100 MG, QD
     Route: 041
     Dates: start: 20150107, end: 20150109
  8. DEXTROMETHORPHAN HYDROBROMIDE (+) GUAIFENESIN [Concomitant]
     Dosage: TID, TOTAL DAILY DOSE 600MG
     Route: 048
     Dates: start: 20141225
  9. PIPERACILLIN AND TAZOBACTAM [Concomitant]
     Active Substance: PIPERACILLIN SODIUM\TAZOBACTAM SODIUM
     Dosage: TOTAL DAILY DOSE: 18 G, FREQUENCY: Q8H
     Route: 041
     Dates: start: 20141226
  10. NIFEDIPINE. [Concomitant]
     Active Substance: NIFEDIPINE
     Indication: HYPERTENSION
     Dosage: 30 MG, QD
     Route: 048
     Dates: start: 20150104
  11. SHEN YI JIAO NANG [Concomitant]
     Indication: IMMUNE ENHANCEMENT THERAPY
     Dosage: TID, TOTAL DAILY DOSE 30MG
     Route: 048
     Dates: start: 20150104, end: 20150105
  12. IPRATROPIUM BROMIDE. [Concomitant]
     Active Substance: IPRATROPIUM BROMIDE
     Indication: ASTHMA
     Dosage: 2 ML, BID
     Route: 055
     Dates: start: 20141223, end: 20141225
  13. BUDESONIDE. [Concomitant]
     Active Substance: BUDESONIDE
     Indication: ASTHMA
     Dosage: 1 MG, BID; FORMULATION: ATOMIZED LIQUID
     Route: 055
     Dates: start: 20141225, end: 20141228
  14. AZASETRON [Concomitant]
     Active Substance: AZASETRON
     Indication: PROPHYLAXIS OF NAUSEA AND VOMITING
     Dosage: 10 MG, QD
     Route: 041
     Dates: start: 20150107, end: 20150108
  15. DOXOFYLLINE [Concomitant]
     Active Substance: DOXOFYLLINE
     Dosage: 0.2 G, Q12H
     Route: 041
     Dates: start: 20141222, end: 20150106
  16. INSULIN [Concomitant]
     Active Substance: INSULIN NOS
     Dosage: 16 IU, QD (16 IU/KG/H)
     Route: 041
     Dates: start: 20141231, end: 20150105
  17. DEXAMETHASONE. [Concomitant]
     Active Substance: DEXAMETHASONE
     Dosage: BID, TOTAL DAILY DOSE 16MG
     Route: 048
     Dates: start: 20150106
  18. CODEINE [Concomitant]
     Active Substance: CODEINE
     Dosage: 60 MG, QD
     Route: 048
     Dates: start: 20150105, end: 20150105
  19. METHOXYPHENAMINE HYDROCHLORIDE [Concomitant]
     Active Substance: METHOXYPHENAMINE HYDROCHLORIDE
     Indication: ASTHMA
     Dosage: DAILY DOSE 279 MG, FREQUENCY TID
     Route: 048
     Dates: start: 20141222, end: 20141225
  20. CISPLATIN. [Concomitant]
     Active Substance: CISPLATIN
     Indication: CHEMOTHERAPY
     Dosage: 50 MG, QD/ 50MG D1-D2; TREATMENT REGIMEN: CISPLATIN AND DOCETAXEL, CYCLE 5/UNK
     Route: 041
     Dates: start: 20150107, end: 20150108
  21. CODEINE [Concomitant]
     Active Substance: CODEINE
     Dosage: 90 MG, QD
     Route: 048
     Dates: start: 20150101, end: 20150101
  22. POTASSIUM CHLORIDE. [Concomitant]
     Active Substance: POTASSIUM CHLORIDE
     Dosage: 10 ML, QD
     Route: 041
     Dates: start: 20150107, end: 20150109
  23. DOXOFYLLINE [Concomitant]
     Active Substance: DOXOFYLLINE
     Indication: ASTHMA
     Dosage: TOTAL DAILY DOSE: 0.2 G, FREQUENCY: Q12H
     Route: 041
     Dates: start: 20150107, end: 20150112
  24. AMBROXOL HYDROCHLORIDE [Concomitant]
     Active Substance: AMBROXOL HYDROCHLORIDE
     Indication: PRODUCTIVE COUGH
     Dosage: 30 MG, Q12H
     Route: 041
     Dates: start: 20141222
  25. PANTOPRAZOLE [Concomitant]
     Active Substance: PANTOPRAZOLE SODIUM
     Indication: ANTACID THERAPY
     Dosage: 40 MG, QD
     Route: 041
     Dates: start: 20141223
  26. SHEN YI JIAO NANG [Concomitant]
     Dosage: BID, TOTAL DAILY DOSE 20MG
     Route: 048
     Dates: start: 20150109, end: 20150114
  27. EMEND [Suspect]
     Active Substance: APREPITANT
     Indication: PROPHYLAXIS OF NAUSEA AND VOMITING
     Dosage: 125 MG, ONCE, DAY ONE
     Route: 048
     Dates: start: 20150107, end: 20150107
  28. AMBROXOL HYDROCHLORIDE [Concomitant]
     Active Substance: AMBROXOL HYDROCHLORIDE
     Dosage: 30 MG, QD
     Route: 041
     Dates: start: 20150110, end: 20150110
  29. CODEINE [Concomitant]
     Active Substance: CODEINE
     Dosage: 60 MG, QD
     Route: 048
     Dates: start: 20150103, end: 20150103
  30. DIPHENHYDRAMINE. [Concomitant]
     Active Substance: DIPHENHYDRAMINE
     Indication: PROPHYLAXIS OF NAUSEA AND VOMITING
     Dosage: 20 MG, QD
     Route: 042
     Dates: start: 20150107, end: 20150107
  31. POTASSIUM CHLORIDE. [Concomitant]
     Active Substance: POTASSIUM CHLORIDE
     Dosage: 10 ML, QD
     Route: 041
     Dates: start: 20150111, end: 20150111
  32. POTASSIUM CHLORIDE. [Concomitant]
     Active Substance: POTASSIUM CHLORIDE
     Dosage: 20 ML, QD
     Route: 041
     Dates: start: 20150113, end: 20150113
  33. DOCETAXEL. [Concomitant]
     Active Substance: DOCETAXEL
     Indication: CHEMOTHERAPY
     Dosage: 140 MG, QD/ 140MG D1; TREATMENT REGIMEN: CISPLATIN AND DOCETAXEL, CYCLE 5/UNK
     Route: 041
     Dates: start: 20150107, end: 20150107
  34. AMBROXOL HYDROCHLORIDE [Concomitant]
     Active Substance: AMBROXOL HYDROCHLORIDE
     Dosage: 30 MG, QD
     Route: 041
     Dates: start: 20150112, end: 20150114
  35. SHENG XUE NING PIAN [Concomitant]
     Dosage: BID, TOTAL DAILY DOSE 1G
     Route: 048
     Dates: start: 20150106
  36. DEXAMETHASONE. [Concomitant]
     Active Substance: DEXAMETHASONE
     Indication: PROPHYLAXIS OF NAUSEA AND VOMITING
     Dosage: 5 MG, QD
     Route: 041
     Dates: start: 20150105, end: 20150105

REACTIONS (4)
  - Glaucoma [Recovering/Resolving]
  - Blood potassium decreased [Recovered/Resolved]
  - Hepatic function abnormal [Recovered/Resolved]
  - Constipation [Recovered/Resolved]

NARRATIVE: CASE EVENT DATE: 20150108
